FAERS Safety Report 9790886 (Version 2)
Quarter: 2014Q1

REPORT INFORMATION
  Report Type: Spontaneous
  Country: FR (occurrence: FR)
  Receive Date: 20131231
  Receipt Date: 20140203
  Transmission Date: 20141002
  Serious: Yes (Hospitalization, Other)
  Sender: FDA-Public Use
  Company Number: FR-BRISTOL-MYERS SQUIBB COMPANY-19936517

PATIENT
  Age: 49 Year
  Sex: Male
  Weight: 79 kg

DRUGS (5)
  1. REYATAZ [Suspect]
     Indication: HIV INFECTION
     Dates: start: 20080612
  2. NORVIR [Suspect]
     Indication: HIV INFECTION
     Dates: start: 20080612
  3. TRUVADA [Suspect]
     Indication: HIV INFECTION
     Dates: start: 20080612
  4. PREZISTA [Suspect]
     Indication: HIV INFECTION
     Dates: start: 20080612
  5. ETRAVIRINE [Suspect]
     Indication: HIV INFECTION
     Dates: start: 20080612

REACTIONS (1)
  - Tendon rupture [Not Recovered/Not Resolved]
